FAERS Safety Report 19733697 (Version 2)
Quarter: 2021Q4

REPORT INFORMATION
  Report Type: Spontaneous
  Country: RU (occurrence: RU)
  Receive Date: 20210823
  Receipt Date: 20211014
  Transmission Date: 20220303
  Serious: Yes (Hospitalization)
  Sender: FDA-Public Use
  Company Number: RU-NOVOPROD-838539

PATIENT
  Age: 3 Month
  Sex: Male
  Weight: 3.2 kg

DRUGS (4)
  1. NOVORAPID [Suspect]
     Active Substance: INSULIN ASPART
     Indication: Type 1 diabetes mellitus
     Dosage: 22 IU, TID
     Route: 064
     Dates: start: 20200910
  2. NOVORAPID [Suspect]
     Active Substance: INSULIN ASPART
     Dosage: 22 IU, TID
     Route: 063
  3. LEVEMIR [Suspect]
     Active Substance: INSULIN DETEMIR
     Dosage: 24 IU, BID
     Route: 063
  4. LEVEMIR [Suspect]
     Active Substance: INSULIN DETEMIR
     Indication: Type 1 diabetes mellitus
     Dosage: 24 IU, BID
     Route: 064
     Dates: start: 20200910

REACTIONS (4)
  - Meconium ileus [Recovered/Resolved]
  - Premature baby [Recovered/Resolved]
  - Foetal exposure during pregnancy [Recovered/Resolved]
  - Exposure via breast milk [Unknown]

NARRATIVE: CASE EVENT DATE: 20200910
